FAERS Safety Report 9713813 (Version 1)
Quarter: 2013Q4

REPORT INFORMATION
  Report Type: Spontaneous
  Country: US (occurrence: None)
  Receive Date: 20131126
  Receipt Date: 20131126
  Transmission Date: 20140711
  Serious: Yes (Life-Threatening, Hospitalization, Other)
  Sender: FDA-Public Use
  Company Number: None

PATIENT
  Age: 59 Year
  Sex: Male
  Weight: 68.04 kg

DRUGS (1)
  1. METHOTREXATE [Suspect]
     Indication: LEUKAEMIA
     Dosage: 8 PILLS ONE DAY A WEEK; 4 X 4
     Route: 048
     Dates: start: 20110815, end: 20120822

REACTIONS (1)
  - Hodgkin^s disease [None]
